FAERS Safety Report 5322569-5 (Version None)
Quarter: 2007Q1

REPORT INFORMATION
  Report Type: 
  Country: None (occurrence: None)
  Receive Date: 20070220
  Receipt Date: 20061115
  Transmission Date: 20070707
  Serious: No
  Sender: FDA-Public Use
  Company Number: TPA2006A01906

PATIENT
  Age: 73 Year
  Sex: Male
  Weight: 63.05 kg

DRUGS (5)
  1. ROZEREM [Suspect]
     Indication: INSOMNIA
     Dosage: 8 MG, QHS, PER ORAL
     Route: 048
     Dates: start: 20061018
  2. ZOCOR (SIMVASTATIN) (75 MILLIGRAM) [Concomitant]
  3. FELODIPINE [Concomitant]
  4. PLAVIX [Concomitant]
  5. COZAAR [Concomitant]

REACTIONS (2)
  - INITIAL INSOMNIA [None]
  - THERAPEUTIC RESPONSE DELAYED [None]
